FAERS Safety Report 7765000-2 (Version None)
Quarter: 2011Q3

REPORT INFORMATION
  Report Type: 
  Country: None (occurrence: None)
  Receive Date: 20110921
  Receipt Date: 20110913
  Transmission Date: 20111222
  Serious: Yes (Other)
  Sender: FDA-Public Use
  Company Number: JP-JNJFOC-20110907772

PATIENT
  Sex: Male

DRUGS (2)
  1. STOMACH AGENT [Concomitant]
     Route: 065
  2. TRAMADOL HYDROCHLORIDE/ACETAMINOPHEN [Suspect]
     Indication: PAIN
     Dosage: 1 PER 1 DAY
     Route: 048

REACTIONS (1)
  - WITHDRAWAL SYNDROME [None]
